FAERS Safety Report 18564984 (Version 1)
Quarter: 2020Q4

REPORT INFORMATION
  Report Type: Spontaneous
  Country: IN (occurrence: IN)
  Receive Date: 20201201
  Receipt Date: 20201201
  Transmission Date: 20210114
  Serious: Yes (Death, Other)
  Sender: FDA-Public Use
  Company Number: IN-PFIZER INC-2020437024

PATIENT
  Age: 72 Year
  Sex: Female

DRUGS (5)
  1. VITAMIN D [COLECALCIFEROL] [Concomitant]
     Active Substance: CHOLECALCIFEROL
     Dosage: 60000 IU, CYCLIC (ONCE IN 2 WEEKS)
  2. FEMARA [Concomitant]
     Active Substance: LETROZOLE
     Dosage: 2.5 MG (0-1-0)
  3. SHELCAL [CALCIUM;COLECALCIFEROL] [Concomitant]
     Dosage: 500 MG, 1X/DAY
  4. ZOLEDRONIC ACID [Concomitant]
     Active Substance: ZOLEDRONIC ACID
     Dosage: 4 MG, CYCLIC, (4 MG IN 100 ML ONCE IN 2 MONTHS)
  5. PALBACE [Suspect]
     Active Substance: PALBOCICLIB
     Indication: BREAST CANCER METASTATIC
     Dosage: 125 MG, 1X/DAY (TO START AFTER 5 DAYS) 3 WEEKS ON, 1 WEEK OFF, 2 MONTHS
     Route: 048
     Dates: start: 20200207, end: 20201120

REACTIONS (1)
  - Death [Fatal]

NARRATIVE: CASE EVENT DATE: 2020
